FAERS Safety Report 11728740 (Version 1)
Quarter: 2015Q4

REPORT INFORMATION
  Report Type: Spontaneous
  Country: US (occurrence: US)
  Receive Date: 20151112
  Receipt Date: 20151112
  Transmission Date: 20160304
  Serious: Yes (Hospitalization, Other)
  Sender: FDA-Public Use
  Company Number: US-PFIZER INC-2015384364

PATIENT
  Age: 72 Year
  Sex: Female
  Weight: 95.24 kg

DRUGS (1)
  1. AROMASIN [Suspect]
     Active Substance: EXEMESTANE
     Dosage: UNK

REACTIONS (5)
  - Nephrolithiasis [Unknown]
  - Acute kidney injury [Unknown]
  - Feeling abnormal [Unknown]
  - Asthenia [Unknown]
  - Chronic kidney disease [Unknown]

NARRATIVE: CASE EVENT DATE: 20151109
